FAERS Safety Report 12537861 (Version 1)
Quarter: 2016Q3

REPORT INFORMATION
  Report Type: Spontaneous
  Country: US (occurrence: US)
  Receive Date: 20160707
  Receipt Date: 20160707
  Transmission Date: 20161109
  Serious: Yes (Other)
  Sender: FDA-Public Use
  Company Number: US-DSJP-DSU-2015-120455

PATIENT
  Age: 65 Year
  Sex: Female
  Weight: 84.35 kg

DRUGS (2)
  1. ASPIRIN                            /00002701/ [Concomitant]
     Active Substance: ASPIRIN
     Indication: PRODUCT USED FOR UNKNOWN INDICATION
  2. BENICAR HCT [Suspect]
     Active Substance: HYDROCHLOROTHIAZIDE\OLMESARTAN MEDOXOMIL
     Indication: HYPERTENSION
     Dosage: 40/12.5 MG, QD
     Dates: start: 2011, end: 2013

REACTIONS (7)
  - Malabsorption [Not Recovered/Not Resolved]
  - Unevaluable event [Unknown]
  - Hiatus hernia [Unknown]
  - Dysphagia [Unknown]
  - Renal failure [Unknown]
  - Renal cyst [Unknown]
  - Hepatic cyst [Unknown]

NARRATIVE: CASE EVENT DATE: 2011
